FAERS Safety Report 9063286 (Version 1)
Quarter: 2013Q1

REPORT INFORMATION
  Report Type: Spontaneous
  Country: US (occurrence: US)
  Receive Date: 20130213
  Receipt Date: 20130213
  Transmission Date: 20140127
  Serious: Yes (Hospitalization)
  Sender: FDA-Public Use
  Company Number: US-JNJFOC-20130200215

PATIENT
  Sex: Male
  Weight: 37.2 kg

DRUGS (6)
  1. CONCERTA [Suspect]
     Indication: ATTENTION DEFICIT/HYPERACTIVITY DISORDER
     Dosage: ONCE A DAY ON WEEKENDS AND HOLIDAYS
     Route: 048
     Dates: start: 201107
  2. CONCERTA [Suspect]
     Indication: ATTENTION DEFICIT/HYPERACTIVITY DISORDER
     Route: 048
     Dates: start: 201101, end: 201105
  3. CONCERTA [Suspect]
     Indication: ATTENTION DEFICIT/HYPERACTIVITY DISORDER
     Dosage: ONCE A DAY ON WEEKENDS AND HOLIDAYS
     Route: 048
     Dates: start: 201105
  4. CONCERTA [Suspect]
     Indication: ATTENTION DEFICIT/HYPERACTIVITY DISORDER
     Route: 048
     Dates: start: 201105, end: 201107
  5. CONCERTA [Suspect]
     Indication: ATTENTION DEFICIT/HYPERACTIVITY DISORDER
     Route: 048
     Dates: start: 2010, end: 201101
  6. METHYLPHENIDATE HYDROCHLORIDE [Suspect]
     Indication: ATTENTION DEFICIT/HYPERACTIVITY DISORDER
     Route: 048
     Dates: start: 201107, end: 201107

REACTIONS (6)
  - Appendicitis [Recovered/Resolved]
  - Generalised anxiety disorder [Unknown]
  - Tic [Not Recovered/Not Resolved]
  - Tachycardia [Recovered/Resolved]
  - Drug ineffective [Not Recovered/Not Resolved]
  - Drug dispensing error [Unknown]
